FAERS Safety Report 5885378-4 (Version None)
Quarter: 2008Q3

REPORT INFORMATION
  Report Type: 
  Country: None (occurrence: None)
  Receive Date: 20080912
  Receipt Date: 20080905
  Transmission Date: 20090109
  Serious: Yes (Other)
  Sender: FDA-Public Use
  Company Number: 027950

PATIENT
  Age: 33 Year
  Sex: Female

DRUGS (3)
  1. CLARAVIS [Suspect]
     Dosage: ORAL, 30 MG, QD, ORAL
     Route: 048
     Dates: start: 20080303, end: 20080414
  2. CLARAVIS [Suspect]
     Dosage: ORAL, 30 MG, QD, ORAL
     Route: 048
     Dates: start: 20080415, end: 20080505
  3. CHANTIX [Concomitant]

REACTIONS (5)
  - ABORTION INDUCED [None]
  - BACK PAIN [None]
  - DRUG EXPOSURE DURING PREGNANCY [None]
  - PREGNANCY ON ORAL CONTRACEPTIVE [None]
  - TREATMENT NONCOMPLIANCE [None]
